FAERS Safety Report 21610751 (Version 1)
Quarter: 2022Q4

REPORT INFORMATION
  Report Type: Spontaneous
  Country: CN (occurrence: None)
  Receive Date: 20221117
  Receipt Date: 20221117
  Transmission Date: 20230113
  Serious: Yes (Other)
  Sender: FDA-Public Use
  Company Number: CN-ROCHE-3216494

PATIENT
  Age: 58 Year
  Sex: Female

DRUGS (6)
  1. HERCEPTIN [Suspect]
     Active Substance: TRASTUZUMAB
     Indication: Breast cancer metastatic
     Dosage: FOR 4 CYCLES
     Route: 065
     Dates: start: 20210622, end: 20210915
  2. HERCEPTIN [Suspect]
     Active Substance: TRASTUZUMAB
     Route: 065
     Dates: start: 20211025, end: 20220909
  3. PERJETA [Suspect]
     Active Substance: PERTUZUMAB
     Indication: Breast cancer metastatic
     Dosage: FOR 4 CYCLES
     Route: 065
     Dates: start: 20210622, end: 20210915
  4. PERJETA [Suspect]
     Active Substance: PERTUZUMAB
     Route: 065
     Dates: start: 20211025, end: 20220909
  5. ALBUMIN HUMAN;PACLITAXEL [Concomitant]
     Dosage: FOR 4 CYCLES
     Dates: start: 20210622, end: 20210915
  6. VINORELBINE [Concomitant]
     Active Substance: VINORELBINE TARTRATE
     Route: 048
     Dates: start: 20211025, end: 20220909

REACTIONS (4)
  - Drug-induced liver injury [Recovered/Resolved]
  - Myelosuppression [Unknown]
  - Neurotoxicity [Unknown]
  - Palmar-plantar erythrodysaesthesia syndrome [Unknown]
